FAERS Safety Report 12389737 (Version 1)
Quarter: 2016Q2

REPORT INFORMATION
  Report Type: Spontaneous
  Country: US (occurrence: US)
  Receive Date: 20160520
  Receipt Date: 20160520
  Transmission Date: 20160815
  Serious: Yes (Other)
  Sender: FDA-Public Use
  Company Number: US-CELGENEUS-USA-2016053449

PATIENT
  Sex: Female
  Weight: 109.41 kg

DRUGS (1)
  1. POMALYST [Suspect]
     Active Substance: POMALIDOMIDE
     Indication: PLASMA CELL MYELOMA
     Dosage: 4 MILLIGRAM
     Route: 048
     Dates: start: 201402, end: 20160513

REACTIONS (3)
  - Haemoglobin decreased [Unknown]
  - Plasma cell myeloma [Unknown]
  - Drug ineffective [Unknown]
